FAERS Safety Report 25475465 (Version 1)
Quarter: 2025Q2

REPORT INFORMATION
  Report Type: Spontaneous
  Country: CN (occurrence: CN)
  Receive Date: 20250624
  Receipt Date: 20250624
  Transmission Date: 20250717
  Serious: Yes (Life-Threatening, Hospitalization, Other)
  Sender: PURDUE
  Company Number: CN-NAPPMUNDI-GBR-2025-0126631

PATIENT
  Age: 68 Year
  Sex: Male
  Weight: 54 kg

DRUGS (2)
  1. OXYCODONE HYDROCHLORIDE [Suspect]
     Active Substance: OXYCODONE HYDROCHLORIDE
     Indication: Lung neoplasm malignant
     Dosage: 10 MILLIGRAM, BID
     Route: 048
     Dates: start: 20250609, end: 20250609
  2. MORPHINE HYDROCHLORIDE [Suspect]
     Active Substance: MORPHINE HYDROCHLORIDE
     Indication: Lung neoplasm malignant
     Dosage: 10 MILLIGRAM, DAILY
     Route: 058
     Dates: start: 20250609, end: 20250609

REACTIONS (3)
  - Respiratory depression [Recovering/Resolving]
  - Somnolence [Recovering/Resolving]
  - Cerebrovascular accident [Unknown]

NARRATIVE: CASE EVENT DATE: 20250609
